FAERS Safety Report 9760369 (Version 1)
Quarter: 2013Q4

REPORT INFORMATION
  Report Type: Spontaneous
  Country: US (occurrence: US)
  Receive Date: 20131216
  Receipt Date: 20131216
  Transmission Date: 20140711
  Serious: No
  Sender: FDA-Public Use
  Company Number: US-GILEAD-2010-0029613

PATIENT
  Sex: Female
  Weight: 49.44 kg

DRUGS (19)
  1. LETAIRIS [Suspect]
     Indication: PULMONARY ARTERIAL HYPERTENSION
     Route: 048
     Dates: start: 20100519
  2. OXYGEN [Concomitant]
  3. LISINOPRIL [Concomitant]
  4. LEVEMIR [Concomitant]
  5. NOVOLOG [Concomitant]
  6. SYMBICORT [Concomitant]
  7. CELEXA [Concomitant]
  8. MUCINEX [Concomitant]
  9. ASPIRIN [Concomitant]
  10. DOCUSATE SODIUM [Concomitant]
  11. LEVOTHROID [Concomitant]
  12. ALBUTEROL [Concomitant]
  13. MULTIVITAMIN [Concomitant]
  14. IPRATROPIUM [Concomitant]
  15. XANAX [Concomitant]
  16. PROCARDIA XL [Concomitant]
  17. DIGOXIN [Concomitant]
  18. POTASSIUM CHLORIDE [Concomitant]
  19. ALTACE [Concomitant]

REACTIONS (1)
  - Swelling face [Unknown]
